FAERS Safety Report 4875895-8 (Version None)
Quarter: 2006Q1

REPORT INFORMATION
  Report Type: 
  Country: None (occurrence: None)
  Receive Date: 20060109
  Receipt Date: 20051020
  Transmission Date: 20060701
  Serious: Yes (Disabling, Other)
  Sender: FDA-Public Use
  Company Number: US-MERCK-0510USA08477

PATIENT
  Age: 51 Year
  Sex: Male
  Weight: 91 kg

DRUGS (2)
  1. VIOXX [Suspect]
     Indication: MYOCARDIAL INFARCTION
     Route: 048
     Dates: start: 20000322, end: 20040826
  2. VIOXX [Suspect]
     Indication: PAIN
     Route: 048
     Dates: start: 20000322, end: 20040826

REACTIONS (7)
  - ADVERSE EVENT [None]
  - BLOOD CHOLESTEROL INCREASED [None]
  - BRONCHITIS [None]
  - DEPRESSION [None]
  - HYPERTENSION [None]
  - MYOCARDIAL INFARCTION [None]
  - STOMACH DISCOMFORT [None]
